FAERS Safety Report 8524125-4 (Version None)
Quarter: 2012Q3

REPORT INFORMATION
  Report Type: 
  Country: None (occurrence: None)
  Receive Date: 20120720
  Receipt Date: 20120622
  Transmission Date: 20120928
  Serious: No
  Sender: FDA-Public Use
  Company Number: DE-FRI-1000031387

PATIENT
  Sex: Female
  Weight: 65 kg

DRUGS (2)
  1. GINKGO [Concomitant]
     Dates: start: 20120131, end: 20120516
  2. MEMANTINE HCL [Suspect]
     Indication: DEMENTIA ALZHEIMER'S TYPE
     Dosage: 10 MG
     Route: 048
     Dates: start: 20120417, end: 20120516

REACTIONS (5)
  - FEAR [None]
  - VOMITING [None]
  - DIZZINESS [None]
  - PANIC ATTACK [None]
  - NAUSEA [None]
